FAERS Safety Report 6419697-X (Version None)
Quarter: 2009Q4

REPORT INFORMATION
  Report Type: 
  Country: None (occurrence: None)
  Receive Date: 20091029
  Receipt Date: 20091023
  Transmission Date: 20100525
  Serious: Yes (Death)
  Sender: FDA-Public Use
  Company Number: B0599984A

PATIENT
  Sex: Male

DRUGS (3)
  1. PAXIL [Suspect]
     Indication: DEPRESSION
     Dosage: 10MG PER DAY
     Route: 048
     Dates: start: 20090918, end: 20090930
  2. PAXIL [Suspect]
     Dosage: 20MG PER DAY
     Route: 048
     Dates: start: 20091001
  3. ETICALM [Suspect]
     Indication: INSOMNIA
     Dosage: .5MG PER DAY
     Route: 048
     Dates: start: 20090804

REACTIONS (1)
  - COMPLETED SUICIDE [None]
